FAERS Safety Report 25755589 (Version 2)
Quarter: 2025Q3

REPORT INFORMATION
  Report Type: Spontaneous
  Country: EU (occurrence: EU)
  Receive Date: 20250903
  Receipt Date: 20250922
  Transmission Date: 20251021
  Serious: Yes (Hospitalization)
  Sender: SANDOZ
  Company Number: EU-002147023-NVSC2023DE220152

PATIENT
  Sex: Male
  Weight: 22.1 kg

DRUGS (4)
  1. AMOXICILLIN\CLAVULANATE POTASSIUM [Suspect]
     Active Substance: AMOXICILLIN\CLAVULANATE POTASSIUM
     Indication: Lymphangitis
     Route: 042
  2. AMOXICILLIN\CLAVULANATE POTASSIUM [Suspect]
     Active Substance: AMOXICILLIN\CLAVULANATE POTASSIUM
     Indication: Arthropod bite
  3. ILARIS [Suspect]
     Active Substance: CANAKINUMAB
     Route: 042
     Dates: start: 20220301
  4. ILARIS [Suspect]
     Active Substance: CANAKINUMAB
     Indication: Still^s disease
     Route: 065
     Dates: start: 201908, end: 202102

REACTIONS (4)
  - Arthropod bite [Recovered/Resolved]
  - Lymphangitis [Recovered/Resolved]
  - Rash [Recovered/Resolved]
  - Inappropriate schedule of product administration [Not Recovered/Not Resolved]

NARRATIVE: CASE EVENT DATE: 20220301
